FAERS Safety Report 5379156-2 (Version None)
Quarter: 2007Q3

REPORT INFORMATION
  Report Type: 
  Country: None (occurrence: None)
  Receive Date: 20070705
  Receipt Date: 20070628
  Transmission Date: 20080115
  Serious: Yes (Other)
  Sender: FDA-Public Use
  Company Number: GB-BRISTOL-MYERS SQUIBB COMPANY-13829775

PATIENT
  Age: 68 Year
  Sex: Male

DRUGS (6)
  1. PRAVASTATIN [Suspect]
     Indication: HYPERCHOLESTEROLAEMIA
     Route: 048
     Dates: start: 20021210
  2. ASPIRIN [Concomitant]
  3. PLAVIX [Concomitant]
  4. CARDURA [Concomitant]
  5. INNOVACE [Concomitant]
  6. EMCOR [Concomitant]

REACTIONS (1)
  - NIGHTMARE [None]
